FAERS Safety Report 8309758-2 (Version None)
Quarter: 2012Q2

REPORT INFORMATION
  Report Type: 
  Country: None (occurrence: None)
  Receive Date: 20120425
  Receipt Date: 20120413
  Transmission Date: 20120825
  Serious: Yes (Other)
  Sender: FDA-Public Use
  Company Number: PHHY2011TH116016

PATIENT
  Sex: Male

DRUGS (2)
  1. GLEEVEC [Suspect]
     Dosage: 1 TABLET IN THE MORNING
  2. TASIGNA [Suspect]
     Dosage: 2 TABLETS IN THE MORNING AND 2 TABLETS IN THE EVENING

REACTIONS (2)
  - CHROMOSOME ANALYSIS ABNORMAL [None]
  - HYPERSENSITIVITY [None]
